FAERS Safety Report 12497405 (Version 1)
Quarter: 2016Q2

REPORT INFORMATION
  Report Type: Spontaneous
  Country: NZ (occurrence: NZ)
  Receive Date: 20160624
  Receipt Date: 20160624
  Transmission Date: 20160815
  Serious: Yes (Life-Threatening)
  Sender: FDA-Public Use
  Company Number: NZ-FRESENIUS KABI-FK201603890

PATIENT
  Age: 55 Year
  Sex: Female

DRUGS (3)
  1. LEVOTHYROXINE SODIUM FOR INJECTION (MANUFACTURER UNKNOWN) [Suspect]
     Active Substance: LEVOTHYROXINE SODIUM
     Route: 065
  2. LEVOTHYROXINE SODIUM FOR INJECTION (MANUFACTURER UNKNOWN) [Suspect]
     Active Substance: LEVOTHYROXINE SODIUM
     Indication: BASEDOW^S DISEASE
     Route: 048
  3. CITALOPRAM [Suspect]
     Active Substance: CITALOPRAM HYDROBROMIDE
     Indication: PRODUCT USED FOR UNKNOWN INDICATION
     Route: 048

REACTIONS (3)
  - Hyperthyroidism [Recovered/Resolved]
  - Generalised tonic-clonic seizure [Recovered/Resolved]
  - Intentional overdose [Recovered/Resolved]
